FAERS Safety Report 22137522 (Version 1)
Quarter: 2023Q1

REPORT INFORMATION
  Report Type: Spontaneous
  Country: MT (occurrence: MT)
  Receive Date: 20230325
  Receipt Date: 20230325
  Transmission Date: 20230418
  Serious: Yes (Hospitalization, Other)
  Sender: FDA-Public Use
  Company Number: None

PATIENT
  Age: 67 Year
  Sex: Male

DRUGS (2)
  1. YERVOY [Suspect]
     Active Substance: IPILIMUMAB
     Indication: Renal cell carcinoma
     Dosage: IPILIMUMAB 3-WEEKLY IV FOR 2 CYCLES
     Route: 042
     Dates: start: 20221201, end: 20230111
  2. OPDIVO [Suspect]
     Active Substance: NIVOLUMAB
     Indication: Renal cell carcinoma
     Dosage: 300MG 3-WEEKLY IV FOR 2 CYCLES
     Route: 042
     Dates: start: 20221201, end: 20230111

REACTIONS (7)
  - Myasthenia gravis [Recovering/Resolving]
  - Ophthalmoplegia [Recovering/Resolving]
  - Dyspnoea [Recovering/Resolving]
  - Dysphonia [Recovering/Resolving]
  - Eyelid ptosis [Recovering/Resolving]
  - Asthenia [Recovering/Resolving]
  - Areflexia [Recovering/Resolving]

NARRATIVE: CASE EVENT DATE: 20221229
